FAERS Safety Report 4412277-7 (Version None)
Quarter: 2004Q2

REPORT INFORMATION
  Report Type: 
  Country: None (occurrence: None)
  Receive Date: 20040630
  Receipt Date: 20040319
  Transmission Date: 20050107
  Serious: No
  Sender: FDA-Public Use
  Company Number: 04P-163-0254141-00

PATIENT
  Age: 49 Year
  Sex: Female
  Weight: 47.6277 kg

DRUGS (4)
  1. HUMIRA [Suspect]
     Indication: JUVENILE ARTHRITIS
     Dosage: 40 MG, 1 IN 2 WK, SUBCUTANEOUS
     Route: 058
     Dates: start: 20030801
  2. METHOTREXATE SODIUM [Concomitant]
  3. PREDNISONE [Concomitant]
  4. THYROID TAB [Concomitant]

REACTIONS (15)
  - ALOPECIA [None]
  - ARTHRALGIA [None]
  - CHONDROPATHY [None]
  - CONDITION AGGRAVATED [None]
  - DECREASED APPETITE [None]
  - DIFFICULTY IN WALKING [None]
  - FATIGUE [None]
  - INJECTION SITE ERYTHEMA [None]
  - INJECTION SITE PRURITUS [None]
  - INJECTION SITE SWELLING [None]
  - LOWER LIMB DEFORMITY [None]
  - LYMPH NODE PAIN [None]
  - PHARYNGOLARYNGEAL PAIN [None]
  - UNEQUAL LEG LENGTH ACQUIRED [None]
  - WEIGHT DECREASED [None]
